FAERS Safety Report 4619743-X (Version None)
Quarter: 2005Q1

REPORT INFORMATION
  Report Type: 
  Country: None (occurrence: None)
  Receive Date: 20050325
  Receipt Date: 20050121
  Transmission Date: 20050727
  Serious: Yes (Disabling)
  Sender: FDA-Public Use
  Company Number: AT-MERCK-0501AUT00010

PATIENT
  Age: 12 Year
  Sex: Male

DRUGS (7)
  1. SINGULAIR [Suspect]
     Indication: ASTHMA
     Route: 048
     Dates: start: 20020620
  2. FLUTICASONE PROPIONATE AND SALMETEROL XINAFOATE [Concomitant]
     Indication: ASTHMA
     Route: 055
     Dates: start: 20020620, end: 20020701
  3. FLUTICASONE PROPIONATE AND SALMETEROL XINAFOATE [Concomitant]
     Indication: BRONCHITIS
     Route: 055
     Dates: start: 20020620, end: 20020701
  4. TERBUTALINE SULFATE [Concomitant]
     Indication: ASTHMA
     Route: 055
     Dates: start: 20020704, end: 20020701
  5. TERBUTALINE SULFATE [Concomitant]
     Indication: BRONCHITIS
     Route: 055
     Dates: start: 20020704, end: 20020701
  6. BUDESONIDE AND FORMOTEROL FUMARATE [Concomitant]
     Indication: ASTHMA
     Route: 055
     Dates: start: 20050120, end: 20050201
  7. ALBUTEROL SULFATE [Concomitant]
     Indication: ASTHMA
     Route: 055
     Dates: start: 20050120

REACTIONS (1)
  - DIABETES MELLITUS INSULIN-DEPENDENT [None]
